FAERS Safety Report 7772816-5 (Version None)
Quarter: 2011Q3

REPORT INFORMATION
  Report Type: 
  Country: None (occurrence: None)
  Receive Date: 20110922
  Receipt Date: 20100115
  Transmission Date: 20111222
  Serious: No
  Sender: FDA-Public Use
  Company Number: US-ASTRAZENECA-2009SE23741

PATIENT
  Age: 38 Year
  Sex: Female
  Weight: 135.6 kg

DRUGS (13)
  1. GEODON [Concomitant]
     Route: 048
     Dates: start: 20050101
  2. SEROQUEL [Suspect]
     Dosage: 100 MG TO 300 MG
     Route: 048
     Dates: start: 20050420
  3. ATIVAN [Concomitant]
  4. ZOLPIDEM [Concomitant]
     Route: 048
     Dates: start: 20090101
  5. HYDROCHLOROTHIAZIDE [Concomitant]
     Route: 048
     Dates: start: 20090101
  6. COZAAR [Concomitant]
     Dosage: 25 TO 100 MG
     Route: 048
     Dates: start: 20090101
  7. ABILIFY [Concomitant]
     Dosage: 20 MG TO 30 MG DAILY
     Route: 048
  8. SEROQUEL [Suspect]
     Indication: BIPOLAR DISORDER
     Dosage: 100- 200 MG
     Route: 048
     Dates: start: 20020101
  9. SPIRONOLACTONE [Concomitant]
     Route: 048
     Dates: start: 20090101
  10. NORTRIPTYLINE HCL [Concomitant]
  11. GABAPENTIN [Concomitant]
  12. CELEXA [Concomitant]
     Route: 048
  13. LORAZEPAM [Concomitant]
     Dosage: 1 TO 2 MG
     Route: 048
     Dates: start: 20090101

REACTIONS (4)
  - OBESITY [None]
  - WEIGHT INCREASED [None]
  - TYPE 2 DIABETES MELLITUS [None]
  - BACK INJURY [None]
